FAERS Safety Report 12156818 (Version 3)
Quarter: 2016Q2

REPORT INFORMATION
  Report Type: Report from Study
  Country: NZ (occurrence: NZ)
  Receive Date: 20160307
  Receipt Date: 20160404
  Transmission Date: 20160815
  Serious: Yes (Other)
  Sender: FDA-Public Use
  Company Number: NZ-CELGENE-NZL-2016025874

PATIENT
  Age: 50 Year
  Sex: Female
  Weight: 96 kg

DRUGS (11)
  1. PARACETAMOL [Concomitant]
     Active Substance: ACETAMINOPHEN
     Indication: PSORIATIC ARTHROPATHY
     Dosage: 40 MILLIGRAM
     Route: 048
     Dates: start: 200907
  2. FERRA-TAB [Concomitant]
     Indication: SERUM FERRITIN DECREASED
     Route: 048
     Dates: start: 20131118
  3. CC-10004 [Suspect]
     Active Substance: APREMILAST
     Route: 048
     Dates: start: 20151201, end: 20160201
  4. PROBIOTIC [Concomitant]
     Active Substance: PROBIOTICS NOS
     Indication: VAGINAL ABSCESS
     Dosage: 200 MILLIGRAM
     Route: 048
     Dates: start: 20120427
  5. CC-10004 [Suspect]
     Active Substance: APREMILAST
     Route: 048
  6. CC-10004 [Suspect]
     Active Substance: APREMILAST
     Route: 048
     Dates: start: 20150210, end: 20150215
  7. LYSINE [Concomitant]
     Active Substance: LYSINE
     Indication: SUPPLEMENTATION THERAPY
     Route: 048
     Dates: start: 20121103
  8. OMEPRAZOLE. [Concomitant]
     Active Substance: OMEPRAZOLE
     Indication: ABDOMINAL PAIN UPPER
     Route: 048
     Dates: start: 20131119
  9. CC-10004 [Suspect]
     Active Substance: APREMILAST
     Indication: PSORIATIC ARTHROPATHY
     Route: 048
     Dates: start: 20150201, end: 20150209
  10. CC-10004 [Suspect]
     Active Substance: APREMILAST
     Route: 048
     Dates: start: 20160215, end: 20160219
  11. CILAZAPRIL [Concomitant]
     Active Substance: CILAZAPRIL ANHYDROUS
     Indication: HYPERTENSION
     Dosage: 5MG/12.5MG
     Route: 048
     Dates: start: 20111129

REACTIONS (1)
  - Palpitations [Recovering/Resolving]

NARRATIVE: CASE EVENT DATE: 201509
